FAERS Safety Report 24650331 (Version 1)
Quarter: 2024Q4

REPORT INFORMATION
  Report Type: Report from Study
  Country: CN (occurrence: CN)
  Receive Date: 20241122
  Receipt Date: 20241122
  Transmission Date: 20250114
  Serious: Yes (Death)
  Sender: ROCHE
  Company Number: CN-ROCHE-10000082612

PATIENT
  Age: 67 Year
  Sex: Female

DRUGS (1)
  1. COLUMVI [Suspect]
     Active Substance: GLOFITAMAB-GXBM
     Indication: Diffuse large B-cell lymphoma
     Route: 042
     Dates: start: 20240327

REACTIONS (4)
  - Discomfort [Unknown]
  - Marasmus [Unknown]
  - General physical condition abnormal [Unknown]
  - Condition aggravated [Fatal]
